FAERS Safety Report 12500666 (Version 2)
Quarter: 2016Q3

REPORT INFORMATION
  Report Type: Spontaneous
  Country: CN (occurrence: CN)
  Receive Date: 20160627
  Receipt Date: 20160706
  Transmission Date: 20161109
  Serious: Yes (Hospitalization)
  Sender: FDA-Public Use
  Company Number: CN-ELI_LILLY_AND_COMPANY-CN201606007000

PATIENT
  Sex: Female
  Weight: 63 kg

DRUGS (4)
  1. HUMULIN R [Suspect]
     Active Substance: INSULIN HUMAN
     Indication: DIABETES MELLITUS
     Dosage: 5 U, BID
     Route: 058
     Dates: start: 2011
  2. HUMULIN R [Suspect]
     Active Substance: INSULIN HUMAN
     Dosage: 7 U, TID
     Route: 058
  3. HUMULIN N [Suspect]
     Active Substance: INSULIN HUMAN
     Indication: DIABETES MELLITUS
     Dosage: 8 U, QD
     Route: 058
     Dates: start: 2011
  4. HUMULIN R [Suspect]
     Active Substance: INSULIN HUMAN
     Dosage: 6 U, QD
     Route: 058
     Dates: start: 2011

REACTIONS (3)
  - Blood glucose increased [Unknown]
  - Cerebral infarction [Unknown]
  - Cerebral infarction [Unknown]

NARRATIVE: CASE EVENT DATE: 2014
